FAERS Safety Report 7974574-8 (Version None)
Quarter: 2011Q4

REPORT INFORMATION
  Report Type: 
  Country: None (occurrence: None)
  Receive Date: 20111213
  Receipt Date: 20111209
  Transmission Date: 20120403
  Serious: Yes (Hospitalization)
  Sender: FDA-Public Use
  Company Number: IN-B.I. PHARMACEUTICALS,INC./RIDGEFIELD-2011-CS-01162IG

PATIENT
  Age: 63 Year
  Sex: Male

DRUGS (2)
  1. METALYSE [Suspect]
     Indication: ACUTE MYOCARDIAL INFARCTION
     Dosage: 0.5 MG/KG BODY WEIGHT
     Route: 042
  2. ENAXOPARIN [Concomitant]

REACTIONS (3)
  - ELECTROCARDIOGRAM ABNORMAL [None]
  - CARDIOVASCULAR DISORDER [None]
  - ELECTROCARDIOGRAM ST SEGMENT ELEVATION [None]
